FAERS Safety Report 12322943 (Version 1)
Quarter: 2016Q2

REPORT INFORMATION
  Report Type: Spontaneous
  Country: US (occurrence: US)
  Receive Date: 20160502
  Receipt Date: 20160502
  Transmission Date: 20160815
  Serious: No
  Sender: FDA-Public Use
  Company Number: US-EMD SERONO-8081739

PATIENT
  Sex: Female

DRUGS (2)
  1. GONAL-F [Suspect]
     Active Substance: FOLLITROPIN
  2. GONAL-F [Suspect]
     Active Substance: FOLLITROPIN
     Indication: INFERTILITY

REACTIONS (1)
  - Malaise [Unknown]
